FAERS Safety Report 8449898-0 (Version None)
Quarter: 2012Q2

REPORT INFORMATION
  Report Type: 
  Country: None (occurrence: None)
  Receive Date: 20120620
  Receipt Date: 20120612
  Transmission Date: 20120825
  Serious: Yes (Other)
  Sender: FDA-Public Use
  Company Number: PHHY2012FR051734

PATIENT
  Age: 9 Year
  Sex: Female

DRUGS (1)
  1. RITALIN [Suspect]
     Indication: ATTENTION DEFICIT/HYPERACTIVITY DISORDER
     Dosage: 10 MG, DAILY
     Dates: start: 20100501

REACTIONS (5)
  - CACHEXIA [None]
  - HEPATITIS [None]
  - JAUNDICE [None]
  - ASTHENIA [None]
  - DECREASED APPETITE [None]
